FAERS Safety Report 12292282 (Version 4)
Quarter: 2016Q4

REPORT INFORMATION
  Report Type: Spontaneous
  Country: FR (occurrence: FR)
  Receive Date: 20160421
  Receipt Date: 20161201
  Transmission Date: 20170207
  Serious: Yes (Disabling, Congenital Anomaly, Other)
  Sender: FDA-Public Use
  Company Number: FR-ABBVIE-16P-163-1610499-00

PATIENT
  Sex: Male

DRUGS (1)
  1. DEPAKINE [Suspect]
     Active Substance: VALPROATE SODIUM
     Indication: MATERNAL EXPOSURE TIMING UNSPECIFIED
     Route: 064

REACTIONS (12)
  - Abnormal behaviour [Unknown]
  - Fear [Unknown]
  - Mental disorder [Not Recovered/Not Resolved]
  - Foetal exposure during pregnancy [Unknown]
  - Kyphosis [Unknown]
  - Speech disorder [Unknown]
  - Personality disorder [Unknown]
  - Psychomotor retardation [Unknown]
  - Encopresis [Unknown]
  - Seizure [Recovered/Resolved]
  - Intellectual disability [Unknown]
  - Developmental delay [Unknown]

NARRATIVE: CASE EVENT DATE: 199411
